FAERS Safety Report 16457869 (Version 1)
Quarter: 2019Q2

REPORT INFORMATION
  Report Type: Report from Study
  Country: IT (occurrence: IT)
  Receive Date: 20190620
  Receipt Date: 20190620
  Transmission Date: 20190711
  Serious: Yes (Other)
  Sender: FDA-Public Use
  Company Number: IT-PFIZER INC-2019259423

PATIENT
  Age: 14 Year
  Sex: Female
  Weight: 58 kg

DRUGS (4)
  1. DEPAKIN [Concomitant]
     Active Substance: VALPROATE SODIUM
     Route: 048
  2. PARACETAMOL [Concomitant]
     Active Substance: ACETAMINOPHEN
     Route: 048
  3. EN [Suspect]
     Active Substance: DELORAZEPAM
     Route: 048
     Dates: start: 20190406, end: 20190406
  4. SERTRALINE HCL [Suspect]
     Active Substance: SERTRALINE HYDROCHLORIDE
     Dosage: 150 MG, AS NEEDED
     Route: 048
     Dates: start: 20190406, end: 20190406

REACTIONS (5)
  - Mydriasis [Recovering/Resolving]
  - Tremor [Recovering/Resolving]
  - Confusional state [Recovering/Resolving]
  - Balance disorder [Recovering/Resolving]
  - Gait disturbance [Recovering/Resolving]

NARRATIVE: CASE EVENT DATE: 20190406
